FAERS Safety Report 9424531 (Version 1)
Quarter: 2013Q3

REPORT INFORMATION
  Report Type: Spontaneous
  Country: US (occurrence: US)
  Receive Date: 20130729
  Receipt Date: 20130729
  Transmission Date: 20140515
  Serious: No
  Sender: FDA-Public Use
  Company Number: US-BAYER-2013-090936

PATIENT
  Age: 26 Year
  Sex: Female
  Weight: 58.96 kg

DRUGS (2)
  1. ALEVE GELCAPS [Suspect]
     Indication: HEADACHE
     Dosage: 1 DF WITH FOOD, QD
     Route: 048
     Dates: start: 201307, end: 20130722
  2. PROZAC [Concomitant]

REACTIONS (2)
  - Drug ineffective [None]
  - Drug ineffective [None]
